FAERS Safety Report 8499870-X (Version None)
Quarter: 2012Q3

REPORT INFORMATION
  Report Type: 
  Country: None (occurrence: None)
  Receive Date: 20120703
  Receipt Date: 20120703
  Transmission Date: 20120928
  Serious: Yes (Hospitalization)
  Sender: FDA-Public Use
  Company Number: None

PATIENT
  Sex: Female
  Weight: 81.8 kg

DRUGS (1)
  1. RITUXIMAB 375 MG/M2 GENENTECH [Suspect]
     Indication: LYMPHOMA
     Dosage: 720 MG ONCE IV
     Route: 042
     Dates: start: 20120629, end: 20120630

REACTIONS (5)
  - PYREXIA [None]
  - ANAEMIA [None]
  - DYSPNOEA [None]
  - TACHYCARDIA [None]
  - INFUSION RELATED REACTION [None]
